FAERS Safety Report 25771959 (Version 1)
Quarter: 2025Q3

REPORT INFORMATION
  Report Type: Spontaneous
  Country: US (occurrence: US)
  Receive Date: 20250908
  Receipt Date: 20250908
  Transmission Date: 20251021
  Serious: No
  Sender: Kenvue
  Company Number: US-KENVUE-20250302000

PATIENT
  Age: 3 Decade
  Sex: Female

DRUGS (4)
  1. ZYRTEC [Suspect]
     Active Substance: CETIRIZINE HYDROCHLORIDE
     Indication: Seasonal allergy
     Route: 048
     Dates: start: 20250512
  2. TYLENOL EXTRA STRENGTH [Concomitant]
     Active Substance: ACETAMINOPHEN
     Indication: Migraine
     Route: 048
     Dates: start: 202411
  3. VITAMINS [Concomitant]
     Active Substance: VITAMINS
     Indication: Supplementation therapy
     Route: 048
  4. URSODIOL [Concomitant]
     Active Substance: URSODIOL
     Indication: Pruritus
     Route: 048
     Dates: start: 20250512, end: 202507

REACTIONS (2)
  - Exposure during pregnancy [Unknown]
  - Premature labour [Unknown]

NARRATIVE: CASE EVENT DATE: 20250512
